FAERS Safety Report 6494669-8 (Version None)
Quarter: 2009Q4

REPORT INFORMATION
  Report Type: 
  Country: None (occurrence: None)
  Receive Date: 20091214
  Receipt Date: 20090313
  Transmission Date: 20100525
  Serious: No
  Sender: FDA-Public Use
  Company Number: US-BRISTOL-MYERS SQUIBB COMPANY-14543011

PATIENT
  Age: 14 Year
  Sex: Male
  Weight: 65 kg

DRUGS (3)
  1. ABILIFY [Suspect]
     Indication: ATTENTION DEFICIT/HYPERACTIVITY DISORDER
  2. ABILIFY [Suspect]
     Indication: MOOD SWINGS
  3. VYVANSE [Concomitant]

REACTIONS (2)
  - AGITATION [None]
  - ENERGY INCREASED [None]
